FAERS Safety Report 10430251 (Version 1)
Quarter: 2014Q3

REPORT INFORMATION
  Report Type: Spontaneous
  Country: US (occurrence: None)
  Receive Date: 20140903
  Receipt Date: 20140903
  Transmission Date: 20150326
  Serious: Yes (Death)
  Sender: FDA-Public Use
  Company Number: None

PATIENT
  Age: 87 Year
  Sex: Male

DRUGS (1)
  1. ENBREL [Suspect]
     Active Substance: ETANERCEPT
     Dosage: 50 MG  Q7D  SQ
     Route: 058
     Dates: start: 20120501, end: 20140828

REACTIONS (5)
  - Fracture [None]
  - Fall [None]
  - Depression [None]
  - Abasia [None]
  - Eating disorder [None]

NARRATIVE: CASE EVENT DATE: 20140828
